FAERS Safety Report 12689053 (Version 7)
Quarter: 2017Q1

REPORT INFORMATION
  Report Type: Spontaneous
  Country: CA (occurrence: CA)
  Receive Date: 20160826
  Receipt Date: 20170323
  Transmission Date: 20170428
  Serious: Yes (Other)
  Sender: FDA-Public Use
  Company Number: CA-ROCHE-1819814

PATIENT
  Age: 45 Year
  Sex: Male

DRUGS (5)
  1. XOLAIR [Suspect]
     Active Substance: OMALIZUMAB
     Dosage: UNK
     Route: 058
     Dates: start: 20170123
  2. XOLAIR [Suspect]
     Active Substance: OMALIZUMAB
     Dosage: UNK
     Route: 058
     Dates: start: 20170109
  3. XOLAIR [Suspect]
     Active Substance: OMALIZUMAB
     Dosage: UNK
     Route: 058
     Dates: start: 20170306
  4. XOLAIR [Suspect]
     Active Substance: OMALIZUMAB
     Dosage: UNK
     Route: 058
     Dates: start: 20170206
  5. XOLAIR [Suspect]
     Active Substance: OMALIZUMAB
     Indication: ASTHMA
     Route: 058
     Dates: start: 20150306

REACTIONS (15)
  - Dyspnoea [Unknown]
  - Lower respiratory tract infection [Unknown]
  - Nasal congestion [Unknown]
  - Blood pressure increased [Unknown]
  - Wheezing [Unknown]
  - Asthma [Unknown]
  - Blood immunoglobulin E increased [Unknown]
  - General physical health deterioration [Unknown]
  - Ear infection [Unknown]
  - Bronchopulmonary aspergillosis allergic [Unknown]
  - Pain [Unknown]
  - Respiratory tract congestion [Unknown]
  - Sputum discoloured [Not Recovered/Not Resolved]
  - Cough [Not Recovered/Not Resolved]
  - Forced expiratory volume decreased [Unknown]

NARRATIVE: CASE EVENT DATE: 20161002
